FAERS Safety Report 6811457-0 (Version None)
Quarter: 2010Q2

REPORT INFORMATION
  Report Type: 
  Country: None (occurrence: None)
  Receive Date: 20100629
  Receipt Date: 20100629
  Transmission Date: 20101027
  Serious: Yes (Hospitalization)
  Sender: FDA-Public Use
  Company Number: None

PATIENT
  Sex: Female
  Weight: 40.3701 kg

DRUGS (1)
  1. ALBUTEROL SULATE [Suspect]
     Indication: EMPHYSEMA
     Dosage: 1 VIAL EVERY 4 HOURS INHAL
     Route: 055
     Dates: start: 20100428, end: 20100625

REACTIONS (2)
  - PNEUMONIA [None]
  - PRODUCT QUALITY ISSUE [None]
